FAERS Safety Report 21179822 (Version 2)
Quarter: 2022Q3

REPORT INFORMATION
  Report Type: Report from Study
  Country: MX (occurrence: MX)
  Receive Date: 20220805
  Receipt Date: 20220808
  Transmission Date: 20221026
  Serious: Yes (Death)
  Sender: FDA-Public Use
  Company Number: MX-NOVARTISPH-NVSC2022MX176012

PATIENT
  Age: 56 Year
  Sex: Female

DRUGS (1)
  1. AFINITOR [Suspect]
     Active Substance: EVEROLIMUS
     Indication: Product used for unknown indication
     Dosage: 1 DOSAGE FORM, BID (5 MG)
     Route: 048
     Dates: start: 202206

REACTIONS (1)
  - Death [Fatal]

NARRATIVE: CASE EVENT DATE: 20220705
